FAERS Safety Report 9346965 (Version 1)
Quarter: 2013Q2

REPORT INFORMATION
  Report Type: Spontaneous
  Country: US (occurrence: US)
  Receive Date: 20130613
  Receipt Date: 20130613
  Transmission Date: 20140414
  Serious: No
  Sender: FDA-Public Use
  Company Number: US-009507513-1306USA004925

PATIENT
  Sex: Female

DRUGS (1)
  1. DR. SCHOLLS CALLUS REMOVERS [Suspect]
     Indication: PRODUCT USED FOR UNKNOWN INDICATION
     Dosage: 1 DF, ONCE
     Route: 061
     Dates: start: 20130606

REACTIONS (4)
  - Application site haemorrhage [Recovering/Resolving]
  - Application site exfoliation [Recovering/Resolving]
  - Application site pain [Recovering/Resolving]
  - Product adhesion issue [Unknown]
